FAERS Safety Report 4811765-9 (Version None)
Quarter: 2005Q4

REPORT INFORMATION
  Report Type: 
  Country: None (occurrence: None)
  Receive Date: 20051028
  Receipt Date: 20050929
  Transmission Date: 20060501
  Serious: No
  Sender: FDA-Public Use
  Company Number: JP-BOEHRINGER INGELHEIM PHARMACEUTICALS, INC.-2005-BP-17267NB

PATIENT
  Sex: Male
  Weight: 37 kg

DRUGS (2)
  1. MICARDIS [Suspect]
     Indication: HYPERTENSION
     Route: 048
     Dates: start: 20050426, end: 20050721
  2. JUZEN-TAIHO-TO [Concomitant]
     Indication: ASTHENIA
     Route: 048
     Dates: start: 20041222, end: 20050712

REACTIONS (2)
  - HYPOKALAEMIA [None]
  - OEDEMA [None]
